FAERS Safety Report 19426456 (Version 1)
Quarter: 2021Q2

REPORT INFORMATION
  Report Type: Spontaneous
  Country: TH (occurrence: TH)
  Receive Date: 20210617
  Receipt Date: 20210617
  Transmission Date: 20210717
  Serious: Yes (Hospitalization, Other)
  Sender: FDA-Public Use
  Company Number: TH-IPCA LABORATORIES LIMITED-IPC-2021-TH-001224

PATIENT

DRUGS (3)
  1. AMLODIPINE [Concomitant]
     Active Substance: AMLODIPINE BESYLATE
     Indication: HYPERTENSION
     Dosage: 10 MILLIGRAM, QD
     Route: 065
  2. ATENOLOL. [Suspect]
     Active Substance: ATENOLOL
     Indication: HYPERTENSION
     Dosage: 50 MILLIGRAM
     Route: 065
  3. HYDRALAZINE [Concomitant]
     Active Substance: HYDRALAZINE HYDROCHLORIDE
     Indication: HYPERTENSION
     Dosage: 75 MILLIGRAM, QD
     Route: 065

REACTIONS (12)
  - Phaeochromocytoma crisis [Recovering/Resolving]
  - Dyspnoea [Recovering/Resolving]
  - Hypertensive crisis [Recovered/Resolved]
  - Hypokinesia [Recovering/Resolving]
  - Rales [Recovering/Resolving]
  - Cardiomyopathy [Recovering/Resolving]
  - Agitation [Recovering/Resolving]
  - Ejection fraction decreased [Recovering/Resolving]
  - Acute pulmonary oedema [Recovering/Resolving]
  - Sinus tachycardia [Recovering/Resolving]
  - Haemorrhage [Unknown]
  - Necrosis [Unknown]
